FAERS Safety Report 7718158-5 (Version None)
Quarter: 2011Q3

REPORT INFORMATION
  Report Type: 
  Country: None (occurrence: None)
  Receive Date: 20110830
  Receipt Date: 20110824
  Transmission Date: 20111222
  Serious: Yes (Other)
  Sender: FDA-Public Use
  Company Number: BR-ROCHE-795542

PATIENT
  Sex: Female
  Weight: 52 kg

DRUGS (2)
  1. LAPATINIB [Suspect]
     Route: 065
     Dates: start: 20100430
  2. XELODA [Suspect]
     Route: 065
     Dates: start: 20100430

REACTIONS (1)
  - THYROID CANCER [None]
